FAERS Safety Report 9684324 (Version 2)
Quarter: 2013Q4

REPORT INFORMATION
  Report Type: Spontaneous
  Country: JP (occurrence: JP)
  Receive Date: 20131112
  Receipt Date: 20131112
  Transmission Date: 20140711
  Serious: Yes (Life-Threatening, Other)
  Sender: FDA-Public Use
  Company Number: JP-TAKEDA-TCI2013A02537

PATIENT
  Age: 75 Year
  Sex: Male
  Weight: 48 kg

DRUGS (2)
  1. TAKEPRON INTRAVENOUS 30MG. [Suspect]
     Indication: ADHESIOLYSIS
     Dosage: 30 MG, QD
     Route: 041
     Dates: start: 20130408, end: 20130408
  2. MIRACLID [Suspect]
     Indication: ADHESIOLYSIS
     Dosage: 100000 UT, QD
     Route: 041
     Dates: start: 20130408, end: 20130408

REACTIONS (2)
  - Anaphylactic reaction [Recovering/Resolving]
  - Ventricular fibrillation [Unknown]
